FAERS Safety Report 14490421 (Version 3)
Quarter: 2018Q1

REPORT INFORMATION
  Report Type: Report from Study
  Country: GB (occurrence: GB)
  Receive Date: 20180206
  Receipt Date: 20180223
  Transmission Date: 20180509
  Serious: Yes (Death, Life-Threatening, Hospitalization)
  Sender: FDA-Public Use
  Company Number: GB-ASTRAZENECA-2018SE07751

PATIENT
  Age: 19097 Day
  Sex: Male
  Weight: 79 kg

DRUGS (2)
  1. AZD5069 [Suspect]
     Active Substance: INVESTIGATIONAL PRODUCT
     Indication: ADENOCARCINOMA PANCREAS
     Route: 048
  2. MEDI4736 [Suspect]
     Active Substance: DURVALUMAB
     Indication: ADENOCARCINOMA PANCREAS
     Route: 042
     Dates: start: 20171220

REACTIONS (1)
  - Pulmonary oedema [Fatal]

NARRATIVE: CASE EVENT DATE: 20180102
